FAERS Safety Report 24095773 (Version 1)
Quarter: 2024Q3

REPORT INFORMATION
  Report Type: Report from Study
  Country: AU (occurrence: AU)
  Receive Date: 20240716
  Receipt Date: 20240716
  Transmission Date: 20241016
  Serious: Yes (Other)
  Sender: TEVA
  Company Number: AU-JNJFOC-20240154472

PATIENT
  Sex: Female

DRUGS (7)
  1. RIBOMUSTIN [Suspect]
     Active Substance: BENDAMUSTINE HYDROCHLORIDE
     Indication: Hodgkin^s disease
     Dosage: 150 MG, CYCLIC (DAY 1 AND 2 EVERY 3 WEEKS),BATCH NUMBER:  AN416212
     Route: 042
  2. RIBOMUSTIN [Suspect]
     Active Substance: BENDAMUSTINE HYDROCHLORIDE
     Indication: Hodgkin^s disease
     Dosage: 90 MG/M2, CYCLIC (100 MG VIAL; QUANTITY: 2, DOSE:165);BATCH NUMBER:AN416212
     Route: 042
  3. RIBOMUSTIN [Suspect]
     Active Substance: BENDAMUSTINE HYDROCHLORIDE
     Indication: Hodgkin^s disease
     Dosage: 90 MG/M2, CYCLIC (25 MG VIAL; QUANTITY: 6);BATCH NUMBER:AN416212
     Route: 042
  4. OXALIPLATIN [Suspect]
     Active Substance: OXALIPLATIN
     Indication: Hodgkin^s disease
     Dosage: UNK UNK, CYCLIC (2 CYCLES),FORMULATION UNKNOWN
     Route: 065
     Dates: start: 2023
  5. BRENTUXIMAB VEDOTIN [Suspect]
     Active Substance: BRENTUXIMAB VEDOTIN
     Indication: Hodgkin^s disease
     Dosage: UNK UNK, UNKNOWN FREQ,FORMULATION UNKNOWN
     Route: 065
     Dates: start: 2023
  6. BRENTUXIMAB VEDOTIN [Suspect]
     Active Substance: BRENTUXIMAB VEDOTIN
     Indication: Hodgkin^s disease
     Dosage: UNK UNK, CYCLIC (3 CYCLES),FORMULATION UNKNOWN
     Route: 065
     Dates: start: 2019
  7. GEMCITABINE [Suspect]
     Active Substance: GEMCITABINE
     Indication: Hodgkin^s disease
     Dosage: UNK UNK, CYCLIC (2 CYCLES)
     Route: 065
     Dates: start: 2023

REACTIONS (2)
  - Hodgkin^s disease [Recovered/Resolved]
  - Off label use [Unknown]
